FAERS Safety Report 10245117 (Version 3)
Quarter: 2014Q3

REPORT INFORMATION
  Report Type: Spontaneous
  Country: DE (occurrence: DE)
  Receive Date: 20140618
  Receipt Date: 20140717
  Transmission Date: 20150326
  Serious: Yes (Hospitalization)
  Sender: FDA-Public Use
  Company Number: DE-SA-2014SA056532

PATIENT
  Age: 29 Year
  Sex: Female
  Weight: 65 kg

DRUGS (4)
  1. CITALOPRAM [Concomitant]
     Active Substance: CITALOPRAM HYDROBROMIDE
     Indication: DEPRESSION
     Route: 048
     Dates: start: 20140217
  2. OMEPRAZOLE. [Concomitant]
     Active Substance: OMEPRAZOLE
     Indication: PROPHYLAXIS
     Route: 048
     Dates: start: 20140217
  3. GABAPENTIN. [Concomitant]
     Active Substance: GABAPENTIN
     Indication: NEURALGIA
     Route: 048
  4. AUBAGIO [Suspect]
     Active Substance: TERIFLUNOMIDE
     Indication: MULTIPLE SCLEROSIS
     Route: 048
     Dates: start: 20131011

REACTIONS (9)
  - Multiple sclerosis relapse [Recovered/Resolved]
  - Myelitis [Recovered/Resolved]
  - Abdominal pain upper [Recovered/Resolved]
  - Therapeutic response changed [Unknown]
  - Pineal gland cyst [Recovered/Resolved]
  - Central nervous system inflammation [Recovered/Resolved]
  - Pancreatitis [Recovered/Resolved]
  - Paralysis [Recovered/Resolved]
  - Paraesthesia [Recovered/Resolved]

NARRATIVE: CASE EVENT DATE: 201402
